FAERS Safety Report 7089921-1 (Version None)
Quarter: 2010Q4

REPORT INFORMATION
  Report Type: 
  Country: None (occurrence: None)
  Receive Date: 20101108
  Receipt Date: 20101027
  Transmission Date: 20110411
  Serious: Yes (Death)
  Sender: FDA-Public Use
  Company Number: US-AMGEN-QUU443615

PATIENT

DRUGS (2)
  1. NPLATE [Suspect]
     Indication: IDIOPATHIC THROMBOCYTOPENIC PURPURA
     Dosage: 218 A?G, UNK
     Dates: start: 20100108, end: 20100108
  2. NPLATE [Suspect]
     Dates: start: 20100108, end: 20100101

REACTIONS (1)
  - DEATH [None]
